FAERS Safety Report 4308974-4 (Version None)
Quarter: 2004Q1

REPORT INFORMATION
  Report Type: 
  Country: None (occurrence: None)
  Receive Date: 20040227
  Receipt Date: 20040218
  Transmission Date: 20041129
  Serious: Yes (Death, Other)
  Sender: FDA-Public Use
  Company Number: 2002121867JP

PATIENT
  Age: 60 Year
  Sex: Male

DRUGS (6)
  1. CAMPTOSAR [Suspect]
     Indication: COLON CANCER METASTATIC
     Dosage: 80 MG, WEEKLY/CYCLIC, IV DRIP
     Route: 041
     Dates: start: 20020311, end: 20020401
  2. FLUOROURACIL [Concomitant]
  3. HANGE-SHASHIN-TO [Concomitant]
  4. PRIMPERAN INJ [Concomitant]
  5. SOLU-MEDROL [Concomitant]
  6. ISOVORIN [Concomitant]

REACTIONS (8)
  - BLOOD LACTATE DEHYDROGENASE INCREASED [None]
  - CYANOSIS [None]
  - DIARRHOEA [None]
  - GASTROINTESTINAL HAEMORRHAGE [None]
  - GENERAL PHYSICAL HEALTH DETERIORATION [None]
  - INTERSTITIAL LUNG DISEASE [None]
  - MELAENA [None]
  - RADIATION PNEUMONITIS [None]
